FAERS Safety Report 12638793 (Version 2)
Quarter: 2018Q2

REPORT INFORMATION
  Report Type: Report from Study
  Country: US (occurrence: US)
  Receive Date: 20160809
  Receipt Date: 20180528
  Transmission Date: 20180711
  Serious: Yes (Hospitalization, Other)
  Sender: FDA-Public Use
  Company Number: US-TEVA-681301USA

PATIENT
  Age: 37 Year
  Sex: Female

DRUGS (1)
  1. COPAXONE [Suspect]
     Active Substance: GLATIRAMER ACETATE
     Indication: MULTIPLE SCLEROSIS
     Route: 058
     Dates: start: 20150906, end: 20160725

REACTIONS (12)
  - Chest discomfort [Unknown]
  - Rash [Unknown]
  - Erythema [Unknown]
  - Anaphylactic reaction [Unknown]
  - Vomiting projectile [Unknown]
  - Dyspnoea [Unknown]
  - Headache [Unknown]
  - Arthralgia [Unknown]
  - Hot flush [Unknown]
  - Apparent death [Unknown]
  - Peripheral swelling [Unknown]
  - Asthenia [Unknown]

NARRATIVE: CASE EVENT DATE: 20160706
